FAERS Safety Report 5078311-9 (Version None)
Quarter: 2006Q3

REPORT INFORMATION
  Report Type: 
  Country: None (occurrence: None)
  Receive Date: 20060720
  Receipt Date: 20060613
  Transmission Date: 20061208
  Serious: No
  Sender: FDA-Public Use
  Company Number: HQWYE230815JUN06

PATIENT
  Age: 38 Year
  Sex: Female
  Weight: 65.83 kg

DRUGS (2)
  1. ADVIL PM [Suspect]
     Indication: BACK PAIN
     Dosage: 1 CAPLET DAILY, ORAL
     Route: 048
     Dates: start: 20060608, end: 20060611
  2. ADVIL PM [Suspect]
     Indication: SLEEP DISORDER
     Dosage: 1 CAPLET DAILY, ORAL
     Route: 048
     Dates: start: 20060608, end: 20060611

REACTIONS (2)
  - SOMNOLENCE [None]
  - STOMACH DISCOMFORT [None]
